FAERS Safety Report 7520750-8 (Version None)
Quarter: 2011Q2

REPORT INFORMATION
  Report Type: 
  Country: None (occurrence: None)
  Receive Date: 20110603
  Receipt Date: 20101123
  Transmission Date: 20111010
  Serious: Yes (Other)
  Sender: FDA-Public Use
  Company Number: US-BAYER-2010-001148

PATIENT
  Age: 26 Year
  Sex: Female

DRUGS (3)
  1. YASMIN [Suspect]
     Dosage: UNK
     Dates: start: 20080401, end: 20091101
  2. YASMIN [Suspect]
     Dosage: UNK
     Dates: start: 20080401, end: 20091101
  3. DROSPIRENONE AND ETHINYL ESTRADIOL [Suspect]
     Dosage: UNK
     Dates: start: 20080401, end: 20091101

REACTIONS (1)
  - CHOLECYSTECTOMY [None]
